FAERS Safety Report 9913181 (Version 1)
Quarter: 2014Q1

REPORT INFORMATION
  Report Type: Spontaneous
  Country: US (occurrence: None)
  Receive Date: 20140218
  Receipt Date: 20140218
  Transmission Date: 20141002
  Serious: No
  Sender: FDA-Public Use
  Company Number: None

PATIENT
  Age: 55 Year
  Sex: Male
  Weight: 95.26 kg

DRUGS (1)
  1. ORAJEL [Suspect]
     Dosage: QHS X I WEEK
     Dates: start: 20140202, end: 20140208

REACTIONS (1)
  - Parotitis [None]
